FAERS Safety Report 4457095-9 (Version None)
Quarter: 2004Q3

REPORT INFORMATION
  Report Type: 
  Country: None (occurrence: None)
  Receive Date: 20040923
  Receipt Date: 20040915
  Transmission Date: 20050211
  Serious: Yes (Hospitalization)
  Sender: FDA-Public Use
  Company Number: US-ABBOTT-04P-163-0273401-00

PATIENT
  Age: 39 Year
  Sex: Female

DRUGS (3)
  1. BIAXIN XL [Suspect]
     Indication: BRONCHITIS
     Route: 048
     Dates: start: 20040802, end: 20040808
  2. LEXAPRO [Concomitant]
     Indication: DEPRESSION
     Route: 048
     Dates: start: 20010101, end: 20040822
  3. STRATTERA [Concomitant]
     Indication: ATTENTION DEFICIT/HYPERACTIVITY DISORDER
     Route: 048
     Dates: start: 20040701, end: 20040822

REACTIONS (4)
  - DELUSION [None]
  - HALLUCINATION [None]
  - MANIA [None]
  - PSYCHOTIC DISORDER [None]
